FAERS Safety Report 5521453-1 (Version None)
Quarter: 2007Q4

REPORT INFORMATION
  Report Type: 
  Country: None (occurrence: None)
  Receive Date: 20071119
  Receipt Date: 20071109
  Transmission Date: 20080405
  Serious: Yes (Other)
  Sender: FDA-Public Use
  Company Number: US-PFIZER INC-2007037990

PATIENT
  Sex: Male
  Weight: 88.9 kg

DRUGS (4)
  1. VIAGRA [Suspect]
  2. ATACAND [Concomitant]
     Indication: HYPERTENSION
     Dosage: DAILY DOSE:16MG
     Route: 048
  3. LIPITOR [Concomitant]
     Indication: BLOOD CHOLESTEROL INCREASED
     Route: 048
  4. PRILOSEC [Concomitant]
     Route: 048

REACTIONS (2)
  - BLINDNESS [None]
  - OPTIC ISCHAEMIC NEUROPATHY [None]
